FAERS Safety Report 13386979 (Version 13)
Quarter: 2019Q2

REPORT INFORMATION
  Report Type: Spontaneous
  Country: US (occurrence: US)
  Receive Date: 20170330
  Receipt Date: 20190626
  Transmission Date: 20190711
  Serious: Yes (Congenital Anomaly, Other)
  Sender: FDA-Public Use
  Company Number: PHEH2017US009048

PATIENT
  Sex: Male

DRUGS (3)
  1. ZOFRAN [Suspect]
     Active Substance: ONDANSETRON HYDROCHLORIDE
     Indication: FOETAL EXPOSURE DURING PREGNANCY
     Dosage: MOTHER^S DOSE: 4 MG, Q8H
     Route: 064
  2. ZOFRAN [Suspect]
     Active Substance: ONDANSETRON HYDROCHLORIDE
     Indication: FOETAL EXPOSURE DURING PREGNANCY
     Dosage: MOTHER^S DOSE: 8 MG, UNK
     Route: 064
  3. ZOFRAN ODT [Suspect]
     Active Substance: ONDANSETRON HYDROCHLORIDE
     Indication: FOETAL EXPOSURE DURING PREGNANCY
     Route: 064

REACTIONS (23)
  - Tricuspid valve disease [Unknown]
  - Pyrexia [Unknown]
  - Bicuspid aortic valve [Unknown]
  - Respiratory distress [Unknown]
  - Foetal exposure during pregnancy [Unknown]
  - Cardiac murmur [Unknown]
  - Nasal congestion [Unknown]
  - Pulmonary valve incompetence [Unknown]
  - Congenital aortic stenosis [Unknown]
  - Hyperhidrosis [Unknown]
  - Jaundice neonatal [Unknown]
  - Dyspnoea [Unknown]
  - Tricuspid valve incompetence [Unknown]
  - Injury [Unknown]
  - Urticaria [Unknown]
  - Congenital aortic valve incompetence [Unknown]
  - Upper respiratory tract infection [Unknown]
  - Croup infectious [Unknown]
  - Otitis media chronic [Unknown]
  - Heart valve incompetence [Unknown]
  - Congenital tricuspid valve incompetence [Unknown]
  - Cough [Unknown]
  - Rhinorrhoea [Unknown]
